FAERS Safety Report 9230071 (Version 1)
Quarter: 2013Q2

REPORT INFORMATION
  Report Type: Report from Study
  Country: AT (occurrence: AT)
  Receive Date: 20130415
  Receipt Date: 20130415
  Transmission Date: 20140414
  Serious: Yes (Hospitalization)
  Sender: FDA-Public Use
  Company Number: AT-JNJFOC-20130406919

PATIENT
  Sex: Female
  Weight: 75 kg

DRUGS (5)
  1. REMICADE [Suspect]
     Indication: COLITIS ULCERATIVE
     Route: 042
  2. IMURAN [Suspect]
     Indication: COLITIS ULCERATIVE
     Route: 048
  3. METFORMIN [Concomitant]
     Indication: DIABETES MELLITUS
     Route: 048
  4. CONCOR [Concomitant]
     Indication: HYPERTENSION
     Route: 048
  5. PANTOLOC [Concomitant]
     Indication: GASTRITIS
     Route: 048

REACTIONS (1)
  - Squamous cell carcinoma of the vagina [Recovered/Resolved]
